FAERS Safety Report 19078314 (Version 1)
Quarter: 2021Q1

REPORT INFORMATION
  Report Type: Spontaneous
  Country: US (occurrence: US)
  Receive Date: 20210331
  Receipt Date: 20210331
  Transmission Date: 20210420
  Serious: No
  Sender: FDA-Public Use
  Company Number: US-SA-2021SA096698

PATIENT
  Age: 73 Year
  Sex: Female

DRUGS (1)
  1. AMBIEN CR [Suspect]
     Active Substance: ZOLPIDEM TARTRATE
     Indication: INSOMNIA
     Dosage: DRUG STRUCTURE DOSAGE : 12.5 MG DRUG INTERVAL DOSAGE : ONE AT BEDTIME

REACTIONS (1)
  - Increased appetite [Unknown]
